FAERS Safety Report 8042052-6 (Version None)
Quarter: 2011Q4

REPORT INFORMATION
  Report Type: 
  Country: None (occurrence: None)
  Receive Date: 20111202
  Receipt Date: 20110629
  Transmission Date: 20120403
  Serious: Yes (Hospitalization, Other)
  Sender: FDA-Public Use
  Company Number: 2011SP030606

PATIENT
  Age: 25 Year
  Sex: Female
  Weight: 81.6475 kg

DRUGS (4)
  1. NUVARING [Suspect]
     Indication: CONTRACEPTION
     Dates: start: 20090101, end: 20090701
  2. NUVARING [Suspect]
     Indication: CONTRACEPTION
     Dates: start: 20060101, end: 20080801
  3. ALBUTEROL INHALER [Concomitant]
  4. MARIJUANA [Concomitant]

REACTIONS (4)
  - DEEP VEIN THROMBOSIS [None]
  - CAVERNOUS SINUS THROMBOSIS [None]
  - EMOTIONAL DISORDER [None]
  - MIGRAINE [None]
